FAERS Safety Report 24904969 (Version 1)
Quarter: 2025Q1

REPORT INFORMATION
  Report Type: Spontaneous
  Country: US (occurrence: US)
  Receive Date: 20250130
  Receipt Date: 20250130
  Transmission Date: 20250409
  Serious: No
  Sender: MERCK
  Company Number: US-009507513-2501USA006078

PATIENT
  Sex: Female

DRUGS (2)
  1. WINREVAIR [Suspect]
     Active Substance: SOTATERCEPT-CSRK
  2. OPSUMIT [Concomitant]
     Active Substance: MACITENTAN

REACTIONS (1)
  - Injection site rash [Recovered/Resolved]
